FAERS Safety Report 5929186-4 (Version None)
Quarter: 2008Q4

REPORT INFORMATION
  Report Type: 
  Country: None (occurrence: None)
  Receive Date: 20081020
  Receipt Date: 20081006
  Transmission Date: 20090506
  Serious: Yes (Hospitalization)
  Sender: FDA-Public Use
  Company Number: DE-1167467

PATIENT
  Age: 68 Year
  Sex: Male

DRUGS (5)
  1. TRAVATAN [Suspect]
     Indication: GLAUCOMA
     Dosage: 1 GTT QD
     Route: 047
     Dates: start: 20080214
  2. CODIOVAN (CO-DIOVAN) [Concomitant]
  3. NEXIUM (ESOMEPRAZOLE SODIUM) [Concomitant]
  4. TAMSULOSIN HCL [Concomitant]
  5. AMIODARO (AMIODARONE HYDROCHLORIDE) [Concomitant]

REACTIONS (5)
  - ABDOMINAL PAIN [None]
  - ANAL HAEMORRHAGE [None]
  - GASTROINTESTINAL INFLAMMATION [None]
  - HAEMATOCHEZIA [None]
  - LARGE INTESTINAL ULCER [None]
